FAERS Safety Report 7007972-X (Version None)
Quarter: 2010Q3

REPORT INFORMATION
  Report Type: 
  Country: None (occurrence: None)
  Receive Date: 20100920
  Receipt Date: 20100909
  Transmission Date: 20110219
  Serious: Yes (Other)
  Sender: FDA-Public Use
  Company Number: B0671912A

PATIENT
  Age: 61 Year
  Sex: Female

DRUGS (6)
  1. MELPHALAN INJECTION (MELPHALAN) (GENERIC) [Suspect]
     Indication: MULTIPLE MYELOMA
     Dosage: 200 MG/M2 / PER DAY / INTRAVENOUS
     Route: 042
  2. VINCRISTINE [Suspect]
     Indication: MULTIPLE MYELOMA
  3. DOXORUBICIN HCL [Suspect]
     Indication: MULTIPLE MYELOMA
  4. DEXAMETHASONE [Suspect]
     Indication: MULTIPLE MYELOMA
  5. MARROW AUTOTRANSPLANT (FORMULATION UNKNOWN) (MARROW AUTOTRANSPLANT) [Suspect]
     Indication: MULTIPLE MYELOMA
  6. CYCLOPHOSPHAMIDE [Suspect]
     Indication: BLOOD STEM CELL HARVEST

REACTIONS (1)
  - HEPATITIS B [None]
